FAERS Safety Report 22588117 (Version 4)
Quarter: 2024Q4

REPORT INFORMATION
  Report Type: Report from Study
  Country: CA (occurrence: CA)
  Receive Date: 20230612
  Receipt Date: 20241205
  Transmission Date: 20250115
  Serious: Yes (Other)
  Sender: TAKEDA
  Company Number: CA-TAKEDA-2023TUS023425

PATIENT
  Age: 72 Year
  Sex: Female

DRUGS (3)
  1. HUMAN IMMUNOGLOBULIN G [Suspect]
     Active Substance: HUMAN IMMUNOGLOBULIN G
     Indication: Myasthenia gravis
     Dosage: 20 GRAM, 1/WEEK
     Dates: start: 20230302
  2. HUMAN IMMUNOGLOBULIN G [Suspect]
     Active Substance: HUMAN IMMUNOGLOBULIN G
     Dosage: 20 GRAM, 1/WEEK
  3. HUMAN IMMUNOGLOBULIN G [Suspect]
     Active Substance: HUMAN IMMUNOGLOBULIN G
     Dosage: 20 GRAM, 1/WEEK

REACTIONS (13)
  - Limb operation [Not Recovered/Not Resolved]
  - Limb injury [Unknown]
  - Diplopia [Unknown]
  - Incorrect dose administered [Unknown]
  - Device issue [Unknown]
  - Off label use [Unknown]
  - Product temperature excursion issue [Unknown]
  - Wrong technique in product usage process [Unknown]
  - Arthritis [Unknown]
  - Muscular weakness [Unknown]
  - Contusion [Unknown]
  - Infusion site erythema [Recovered/Resolved]
  - Diarrhoea [Unknown]

NARRATIVE: CASE EVENT DATE: 20230302
